FAERS Safety Report 4841430-3 (Version None)
Quarter: 2005Q4

REPORT INFORMATION
  Report Type: 
  Country: None (occurrence: None)
  Receive Date: 20051130
  Receipt Date: 20040517
  Transmission Date: 20060501
  Serious: No
  Sender: FDA-Public Use
  Company Number: US-GLAXOSMITHKLINE-A0511120A

PATIENT
  Age: 51 Year
  Sex: Male

DRUGS (8)
  1. WELLBUTRIN XL [Suspect]
     Indication: DEPRESSION
     Dosage: 300MG PER DAY
     Route: 048
  2. ADVAIR DISKUS 100/50 [Suspect]
     Indication: ILL-DEFINED DISORDER
     Dosage: 1PUFF TWICE PER DAY
     Route: 055
  3. TRAZODONE [Concomitant]
  4. VIRACEPT [Concomitant]
  5. COMBIVIR [Concomitant]
  6. PRAVACHOL [Concomitant]
  7. ZETIA [Concomitant]
  8. NEXIUM [Concomitant]

REACTIONS (4)
  - DEPRESSED MOOD [None]
  - DYSPEPSIA [None]
  - ERECTILE DYSFUNCTION [None]
  - SEMEN VOLUME DECREASED [None]
